FAERS Safety Report 12330394 (Version 1)
Quarter: 2016Q2

REPORT INFORMATION
  Report Type: Report from Study
  Country: US (occurrence: US)
  Receive Date: 20160504
  Receipt Date: 20160504
  Transmission Date: 20160815
  Serious: Yes (Other)
  Sender: FDA-Public Use
  Company Number: US-AMGEN-USASL2016029052

PATIENT
  Age: 54 Year
  Sex: Male
  Weight: 108 kg

DRUGS (13)
  1. REPATHA [Suspect]
     Active Substance: EVOLOCUMAB
     Indication: HYPERLIPIDAEMIA
     Dosage: 140 MG/ML, Q2WK
     Route: 058
     Dates: start: 201511, end: 20160302
  2. ECOTRIN [Concomitant]
     Active Substance: ASPIRIN
     Dosage: 81 MG, QD
     Route: 048
  3. COZAAR [Concomitant]
     Active Substance: LOSARTAN POTASSIUM
     Dosage: 100 MG, QD
     Route: 048
  4. EFFIENT [Concomitant]
     Active Substance: PRASUGREL HYDROCHLORIDE
     Dosage: 10 MG, QD
     Route: 048
  5. NITROSTAT [Concomitant]
     Active Substance: NITROGLYCERIN
     Dosage: 0.4 MG, AS NECESSARY
     Route: 060
  6. DELTASONE [Concomitant]
     Active Substance: PREDNISONE
     Dosage: 5 MG, UNK
  7. DELTASONE [Concomitant]
     Active Substance: PREDNISONE
     Dosage: 7.5 MG, BID
  8. DELTASONE [Concomitant]
     Active Substance: PREDNISONE
     Dosage: 10 MG, QD
  9. THALITONE [Concomitant]
     Active Substance: CHLORTHALIDONE
     Dosage: 25 MG, QD (12.5 MG)
     Route: 048
  10. NITRO-DUR [Concomitant]
     Active Substance: NITROGLYCERIN
     Dosage: 200 MUG, AS NECESSARY
  11. TOPROL XL [Concomitant]
     Active Substance: METOPROLOL SUCCINATE
     Indication: HYPERTENSION
     Dosage: 50 MG, QD
     Route: 048
  12. DELTASONE [Concomitant]
     Active Substance: PREDNISONE
     Dosage: 10 MG, BID
  13. VERELAN PM [Concomitant]
     Active Substance: VERAPAMIL HYDROCHLORIDE
     Dosage: 100 MG, QD
     Route: 048

REACTIONS (14)
  - Coronary artery stenosis [Unknown]
  - Sinusitis [Unknown]
  - Blood cholesterol abnormal [Unknown]
  - Angina pectoris [Unknown]
  - Blood glucose abnormal [Unknown]
  - Labile blood pressure [Not Recovered/Not Resolved]
  - Back pain [Unknown]
  - Sinus disorder [Unknown]
  - Sinus congestion [Recovering/Resolving]
  - Low density lipoprotein abnormal [Unknown]
  - Chest pain [Not Recovered/Not Resolved]
  - Dizziness [Unknown]
  - Vascular stent restenosis [Unknown]
  - Blood triglycerides abnormal [Unknown]

NARRATIVE: CASE EVENT DATE: 20160203
